FAERS Safety Report 9323381 (Version 2)
Quarter: 2013Q4

REPORT INFORMATION
  Report Type: Spontaneous
  Country: US (occurrence: US)
  Receive Date: 20130603
  Receipt Date: 20131211
  Transmission Date: 20140711
  Serious: No
  Sender: FDA-Public Use
  Company Number: US-009507513-1305USA015470

PATIENT
  Sex: Male

DRUGS (2)
  1. DULERA [Suspect]
     Indication: HYPERSENSITIVITY
     Dosage: 2 DF, BID (TWO PUFFS IN THE MORNING AND TWO PUFFS IN THE EVENING
     Route: 055
     Dates: start: 201205
  2. DULERA [Suspect]
     Indication: DYSPNOEA

REACTIONS (3)
  - Drug dose omission [Unknown]
  - Product quality issue [Unknown]
  - No adverse event [Unknown]
